FAERS Safety Report 13290896 (Version 2)
Quarter: 2018Q1

REPORT INFORMATION
  Report Type: Spontaneous
  Country: US (occurrence: US)
  Receive Date: 20170302
  Receipt Date: 20180314
  Transmission Date: 20180508
  Serious: Yes (Hospitalization)
  Sender: FDA-Public Use
  Company Number: US-JNJFOC-20170300456

PATIENT
  Age: 57 Year
  Sex: Female

DRUGS (7)
  1. KEFLEX [Concomitant]
     Active Substance: CEPHALEXIN
     Indication: PROPHYLAXIS
  2. AMBIEN [Concomitant]
     Active Substance: ZOLPIDEM TARTRATE
     Indication: SLEEP DISORDER
     Route: 048
  3. LEVAQUIN [Concomitant]
     Active Substance: LEVOFLOXACIN
     Indication: PROPHYLAXIS
     Route: 048
  4. LEVOTHYROXINE. [Concomitant]
     Active Substance: LEVOTHYROXINE
     Indication: THYROID DISORDER
     Route: 048
  5. MIRTAZAPINE. [Concomitant]
     Active Substance: MIRTAZAPINE
     Indication: DEPRESSION
     Route: 048
  6. NORCO [Concomitant]
     Active Substance: ACETAMINOPHEN\HYDROCODONE BITARTRATE
     Indication: PAIN
     Dosage: 0.5 EVERY 6 HOURS PRN
     Route: 048
  7. IMBRUVICA [Suspect]
     Active Substance: IBRUTINIB
     Indication: CHRONIC LYMPHOCYTIC LEUKAEMIA
     Route: 065
     Dates: end: 2016

REACTIONS (15)
  - Pain [Recovered/Resolved]
  - Laboratory test abnormal [Unknown]
  - Urine output decreased [Unknown]
  - Nausea [Recovered/Resolved]
  - Mental disorder [Unknown]
  - Anxiety [Not Recovered/Not Resolved]
  - Tonsillar hypertrophy [Recovered/Resolved]
  - Pruritus [Unknown]
  - Migraine [Unknown]
  - Malaise [Unknown]
  - Liver disorder [Recovered/Resolved]
  - Blood electrolytes abnormal [Unknown]
  - Lymphadenopathy [Recovered/Resolved]
  - Lymph node pain [Not Recovered/Not Resolved]
  - Adverse event [Unknown]

NARRATIVE: CASE EVENT DATE: 2016
